FAERS Safety Report 6402328-2 (Version None)
Quarter: 2009Q4

REPORT INFORMATION
  Report Type: 
  Country: None (occurrence: None)
  Receive Date: 20091015
  Receipt Date: 20091013
  Transmission Date: 20100525
  Serious: Yes (Death, Hospitalization, Other)
  Sender: FDA-Public Use
  Company Number: PHHY2009BR44131

PATIENT
  Sex: Female

DRUGS (3)
  1. FORASEQ [Suspect]
     Indication: RESPIRATORY FAILURE
     Dosage: 1 INHALATION WITH EACH ACTIVE PRINCIPLE, TWICE A DAY (IN THE MORNING AND AT NIGHT)
  2. OMEPRAZOLE [Concomitant]
     Indication: ABDOMINAL PAIN UPPER
  3. RANITIDINE HYDROCHLORIDE [Concomitant]
     Indication: ABDOMINAL PAIN UPPER
     Route: 048

REACTIONS (5)
  - BRAIN NEOPLASM [None]
  - CONVULSION [None]
  - HEADACHE [None]
  - LUNG NEOPLASM MALIGNANT [None]
  - METASTASIS [None]
